FAERS Safety Report 9739503 (Version 1)
Quarter: 2013Q4

REPORT INFORMATION
  Report Type: Spontaneous
  Country: US (occurrence: US)
  Receive Date: 20131209
  Receipt Date: 20131209
  Transmission Date: 20140711
  Serious: Yes (Other)
  Sender: FDA-Public Use
  Company Number: US-BAYER-2013-147189

PATIENT
  Age: 49 Year
  Sex: Female
  Weight: 80 kg

DRUGS (4)
  1. ALEVE CAPLET [Suspect]
     Indication: PYREXIA
     Dosage: 1 DF, EVERY 6 HOURS
     Route: 048
     Dates: start: 20131126, end: 201311
  2. DEPAKOTE [Concomitant]
     Dosage: UNK
  3. GEODON [Concomitant]
  4. LISINOPRIL [Concomitant]

REACTIONS (8)
  - Gastric haemorrhage [Recovered/Resolved]
  - Haematemesis [Recovered/Resolved]
  - Abdominal pain [Recovered/Resolved]
  - Haematemesis [Recovered/Resolved]
  - Haematochezia [Recovered/Resolved]
  - Poisoning [Unknown]
  - Diarrhoea [Not Recovered/Not Resolved]
  - Extra dose administered [None]
